FAERS Safety Report 13226043 (Version 2)
Quarter: 2017Q2

REPORT INFORMATION
  Report Type: Spontaneous
  Country: US (occurrence: US)
  Receive Date: 20170213
  Receipt Date: 20170428
  Transmission Date: 20170830
  Serious: No
  Sender: FDA-Public Use
  Company Number: US-009507513-1702USA001390

PATIENT
  Age: 33 Year
  Sex: Female
  Weight: 52.15 kg

DRUGS (1)
  1. PREGNYL [Suspect]
     Active Substance: CHORIOGONADOTROPIN ALFA
     Indication: LUTEAL PHASE DEFICIENCY
     Dosage: 2500 UNITS X 3 DOSES
     Route: 030
     Dates: start: 20170202, end: 20170205

REACTIONS (3)
  - No adverse event [Unknown]
  - Product container issue [Unknown]
  - Drug dose omission [Unknown]

NARRATIVE: CASE EVENT DATE: 201702
